FAERS Safety Report 24444902 (Version 1)
Quarter: 2024Q4

REPORT INFORMATION
  Report Type: Spontaneous
  Country: US (occurrence: US)
  Receive Date: 20241016
  Receipt Date: 20241016
  Transmission Date: 20250114
  Serious: No
  Sender: Unknown Manufacturer
  Company Number: US-SHIELD THERAPEUTICS-US-STX-24-00097

PATIENT
  Age: 77 Year
  Sex: Female

DRUGS (8)
  1. ACCRUFER [Suspect]
     Active Substance: FERRIC MALTOL
     Indication: Gastrointestinal haemorrhage
     Dosage: 30 MILLIGRAM, BID
     Route: 048
     Dates: start: 20231226, end: 202402
  2. ACCRUFER [Suspect]
     Active Substance: FERRIC MALTOL
     Dosage: 30 MILLIGRAM, QD
     Route: 048
     Dates: start: 202402, end: 20240815
  3. ALBUTEROL SULFATE [Concomitant]
     Active Substance: ALBUTEROL SULFATE
     Indication: Product used for unknown indication
     Dosage: UNKNOWN
     Route: 065
  4. BACLOFEN [Concomitant]
     Active Substance: BACLOFEN
     Indication: Product used for unknown indication
     Dosage: UNKNOWN
     Route: 065
  5. METHOTREXATE [Concomitant]
     Active Substance: METHOTREXATE
     Indication: Product used for unknown indication
     Dosage: UNKNOWN
     Route: 065
  6. MYSOLINE [Concomitant]
     Active Substance: PRIMIDONE
     Indication: Product used for unknown indication
     Dosage: UNKNOWN
     Route: 065
  7. PRAVASTATIN [Concomitant]
     Active Substance: PRAVASTATIN
     Indication: Product used for unknown indication
     Dosage: UNKNOWN
     Route: 065
  8. FOLIC ACID [Concomitant]
     Active Substance: FOLIC ACID
     Indication: Product used for unknown indication
     Dosage: UNKNOWN
     Route: 065

REACTIONS (1)
  - Abdominal pain upper [Recovered/Resolved]
